FAERS Safety Report 22119170 (Version 1)
Quarter: 2023Q1

REPORT INFORMATION
  Report Type: Spontaneous
  Country: US (occurrence: US)
  Receive Date: 20230321
  Receipt Date: 20230321
  Transmission Date: 20230418
  Serious: Yes (Hospitalization)
  Sender: FDA-Public Use
  Company Number: US-BRISTOL-MYERS SQUIBB COMPANY-2023-037437

PATIENT
  Age: 63 Year
  Sex: Female
  Weight: 128.82 kg

DRUGS (1)
  1. POMALYST [Suspect]
     Active Substance: POMALIDOMIDE
     Indication: Plasma cell myeloma
     Dosage: DAILY 21/28 DAYS
     Route: 048
     Dates: start: 20220201

REACTIONS (2)
  - Bacterial infection [Recovering/Resolving]
  - Immunoglobulins decreased [Recovering/Resolving]

NARRATIVE: CASE EVENT DATE: 20230313
